FAERS Safety Report 13726659 (Version 1)
Quarter: 2017Q3

REPORT INFORMATION
  Report Type: Report from Study
  Country: CN (occurrence: CN)
  Receive Date: 20170707
  Receipt Date: 20170707
  Transmission Date: 20171127
  Serious: Yes (Hospitalization)
  Sender: FDA-Public Use
  Company Number: CN-PFIZER INC-2017291016

PATIENT
  Age: 53 Year
  Sex: Male
  Weight: 47 kg

DRUGS (29)
  1. PREDNISONE. [Suspect]
     Active Substance: PREDNISONE
     Dosage: 10 MG, 1 IN 1 D
     Route: 048
     Dates: start: 20161104, end: 20161106
  2. METOCLOPRAMIDE. [Concomitant]
     Active Substance: METOCLOPRAMIDE
     Dosage: 10 MG, NOT PROVIDED
     Dates: start: 201612, end: 201612
  3. PARACETAMOL [Concomitant]
     Active Substance: ACETAMINOPHEN
     Indication: CHEST PAIN
     Dosage: 325 MG, 1 IN 1 D
     Route: 048
     Dates: start: 20161013, end: 20161013
  4. CYCLOPHOSPHAMIDE. [Suspect]
     Active Substance: CYCLOPHOSPHAMIDE
     Dosage: 750 MG/M2, CYCLIC 1 IN 21 D
     Route: 042
     Dates: start: 20160922, end: 20160922
  5. PREDNISONE. [Suspect]
     Active Substance: PREDNISONE
     Dosage: 100 MG, 1 IN 21 D
     Route: 048
     Dates: start: 20161111
  6. RITUXIMAB. [Suspect]
     Active Substance: RITUXIMAB
     Dosage: 375 MG, 1 IN 21 D
     Route: 042
     Dates: start: 20161110
  7. DOXORUBICIN HCL [Suspect]
     Active Substance: DOXORUBICIN HYDROCHLORIDE
     Dosage: 50 MG/M2, CYCLIC 1 IN 21 D
     Route: 042
     Dates: start: 20161111
  8. VINCRISTINE SULFATE. [Suspect]
     Active Substance: VINCRISTINE SULFATE
     Dosage: 1.4 MG/M2, CYCLIC 1 IN 21 D
     Route: 042
     Dates: start: 20160922, end: 20160922
  9. VINCRISTINE SULFATE. [Suspect]
     Active Substance: VINCRISTINE SULFATE
     Dosage: 1.4 MG/M2, CYCLIC 1 IN 21 D
     Route: 042
     Dates: start: 20161111
  10. PREDNISONE. [Suspect]
     Active Substance: PREDNISONE
     Indication: DIFFUSE LARGE B-CELL LYMPHOMA
     Dosage: 100 MG, 1 IN 21 D
     Route: 048
     Dates: start: 20160701
  11. PREDNISONE. [Suspect]
     Active Substance: PREDNISONE
     Dosage: 5 MG, 1 IN 1 D
     Route: 048
     Dates: start: 20161107, end: 20161109
  12. PREDNISONE. [Suspect]
     Active Substance: PREDNISONE
     Dosage: 100 MG, 1 IN 21 D
     Route: 048
     Dates: start: 20160922, end: 20160927
  13. PREDNISONE. [Suspect]
     Active Substance: PREDNISONE
     Dosage: 50 MG, 2 IN 1 D
     Route: 048
     Dates: start: 20161026, end: 20161028
  14. PREDNISONE. [Suspect]
     Active Substance: PREDNISONE
     Dosage: 15 MG, 1 IN 1 D
     Route: 048
     Dates: start: 20161101, end: 20161103
  15. RITUXIMAB. [Suspect]
     Active Substance: RITUXIMAB
     Dosage: 375 MG, 1 IN 21 D
     Route: 042
     Dates: start: 20160922, end: 20160922
  16. METOCLOPRAMIDE. [Concomitant]
     Active Substance: METOCLOPRAMIDE
     Indication: VOMITING
     Dosage: 10 MG, 1 IN 1 D
     Route: 030
     Dates: start: 20161016, end: 20161016
  17. LANSOPRAZOLE. [Concomitant]
     Active Substance: LANSOPRAZOLE
     Indication: PROPHYLAXIS
  18. DOXORUBICIN HCL [Suspect]
     Active Substance: DOXORUBICIN HYDROCHLORIDE
     Indication: DIFFUSE LARGE B-CELL LYMPHOMA
     Dosage: 50 MG/M2, CYCLIC 1 IN 21 D
     Route: 042
     Dates: start: 20160701
  19. CYCLOPHOSPHAMIDE. [Suspect]
     Active Substance: CYCLOPHOSPHAMIDE
     Indication: DIFFUSE LARGE B-CELL LYMPHOMA
     Dosage: 750 MG/M2, CYCLIC 1 IN 21 D
     Route: 042
     Dates: start: 20160701
  20. OXYCODONE HYDROCHLORIDE. [Concomitant]
     Active Substance: OXYCODONE HYDROCHLORIDE
     Indication: CHEST PAIN
     Dosage: 5 MG, 1 IN 1 D
     Route: 048
     Dates: start: 20161013, end: 20161013
  21. CC-5013 [Suspect]
     Active Substance: LENALIDOMIDE
     Indication: DIFFUSE LARGE B-CELL LYMPHOMA
     Dosage: 15 MG, CYCLIC 1 IN 21 D
     Route: 048
     Dates: start: 20160701
  22. CC-5013 [Suspect]
     Active Substance: LENALIDOMIDE
     Dosage: 15 MG, CYCLIC 1 IN 21 D
     Route: 048
     Dates: start: 20160923, end: 20161006
  23. CC-5013 [Suspect]
     Active Substance: LENALIDOMIDE
     Dosage: 15 MG, CYCLIC 1 IN 21 D
     Route: 048
     Dates: start: 20161111, end: 20161122
  24. VINCRISTINE SULFATE. [Suspect]
     Active Substance: VINCRISTINE SULFATE
     Indication: DIFFUSE LARGE B-CELL LYMPHOMA
     Dosage: 1.4 MG/M2, CYCLIC 1 IN 21 D
     Route: 042
     Dates: start: 20160701
  25. PREDNISONE. [Suspect]
     Active Substance: PREDNISONE
     Dosage: 25 MG, 1 IN 1 D
     Route: 048
     Dates: start: 20161029, end: 20161031
  26. ESTAZOLAM. [Concomitant]
     Active Substance: ESTAZOLAM
     Indication: INSOMNIA
     Dosage: 1 MG, 1 IN 1 D
     Route: 048
     Dates: start: 20161013, end: 20161013
  27. DOXORUBICIN HCL [Suspect]
     Active Substance: DOXORUBICIN HYDROCHLORIDE
     Dosage: 50 MG/M2, CYCLIC 1 IN 21 D
     Route: 042
     Dates: start: 20160922, end: 20160922
  28. CYCLOPHOSPHAMIDE. [Suspect]
     Active Substance: CYCLOPHOSPHAMIDE
     Dosage: 750 MG/M2, CYCLIC 1 IN 21 D
     Route: 042
     Dates: start: 20161111
  29. RITUXIMAB. [Suspect]
     Active Substance: RITUXIMAB
     Indication: DIFFUSE LARGE B-CELL LYMPHOMA
     Dosage: 375 MG, 1 IN 21 D
     Route: 042
     Dates: start: 20160630

REACTIONS (2)
  - Febrile neutropenia [Recovered/Resolved]
  - Interstitial lung disease [Recovered/Resolved]

NARRATIVE: CASE EVENT DATE: 20161005
